FAERS Safety Report 11809538 (Version 2)
Quarter: 2017Q4

REPORT INFORMATION
  Report Type: Report from Study
  Country: US (occurrence: US)
  Receive Date: 20151208
  Receipt Date: 20171124
  Transmission Date: 20180320
  Serious: Yes (Hospitalization, Other)
  Sender: FDA-Public Use
  Company Number: US-ROCHE-1674345

PATIENT
  Age: 70 Year
  Sex: Female
  Weight: 72.64 kg

DRUGS (11)
  1. PREDNISONE. [Concomitant]
     Active Substance: PREDNISONE
     Route: 048
     Dates: start: 2013
  2. ESBRIET [Suspect]
     Active Substance: PIRFENIDONE
     Route: 048
     Dates: start: 20150225
  3. FLORASTOR [Concomitant]
     Active Substance: SACCHAROMYCES CEREVISIAE
     Route: 065
  4. ESBRIET [Suspect]
     Active Substance: PIRFENIDONE
     Dosage: 2 CAPSULES
     Route: 048
     Dates: start: 201612
  5. ESBRIET [Suspect]
     Active Substance: PIRFENIDONE
     Indication: IDIOPATHIC PULMONARY FIBROSIS
     Route: 048
     Dates: start: 2014
  6. ALBUTEROL. [Concomitant]
     Active Substance: ALBUTEROL
     Route: 065
  7. PREDNISONE. [Concomitant]
     Active Substance: PREDNISONE
     Route: 048
     Dates: start: 2014
  8. AZATHIOPRINE. [Concomitant]
     Active Substance: AZATHIOPRINE
     Dosage: 2 TABLETS DAILY
     Route: 065
     Dates: start: 2014
  9. ESBRIET [Suspect]
     Active Substance: PIRFENIDONE
     Route: 048
     Dates: start: 201502
  10. ENSURE [Suspect]
     Active Substance: AMINO ACIDS\DEXTROSE\ELECTROLYTES NOS\SOYBEAN OIL\VITAMINS
     Indication: PRODUCT USED FOR UNKNOWN INDICATION
     Route: 065
  11. ESBRIET [Suspect]
     Active Substance: PIRFENIDONE
     Route: 048
     Dates: start: 20170210

REACTIONS (36)
  - Haemorrhoids [Not Recovered/Not Resolved]
  - Malaise [Not Recovered/Not Resolved]
  - Dyspepsia [Recovered/Resolved with Sequelae]
  - Headache [Not Recovered/Not Resolved]
  - Nasal congestion [Unknown]
  - Syncope [Unknown]
  - Inappropriate schedule of drug administration [Unknown]
  - Feeding disorder [Not Recovered/Not Resolved]
  - Skin exfoliation [Not Recovered/Not Resolved]
  - Dizziness [Not Recovered/Not Resolved]
  - Haemorrhoids [Unknown]
  - Pulmonary oedema [Not Recovered/Not Resolved]
  - Rectal spasm [Not Recovered/Not Resolved]
  - Cough [Not Recovered/Not Resolved]
  - Proctalgia [Not Recovered/Not Resolved]
  - Decreased appetite [Not Recovered/Not Resolved]
  - Dizziness [Recovered/Resolved]
  - Anorectal disorder [Not Recovered/Not Resolved]
  - Fatigue [Unknown]
  - Dyspnoea [Not Recovered/Not Resolved]
  - Dizziness [Recovered/Resolved]
  - Diarrhoea [Recovered/Resolved with Sequelae]
  - Diarrhoea [Recovered/Resolved with Sequelae]
  - Malaise [Not Recovered/Not Resolved]
  - Muscle spasms [Not Recovered/Not Resolved]
  - Discomfort [Not Recovered/Not Resolved]
  - Dyspnoea [Not Recovered/Not Resolved]
  - Nausea [Recovered/Resolved with Sequelae]
  - Dry skin [Not Recovered/Not Resolved]
  - Oropharyngeal pain [Unknown]
  - General physical health deterioration [Unknown]
  - Movement disorder [Recovering/Resolving]
  - Fall [Unknown]
  - Abdominal pain upper [Recovered/Resolved with Sequelae]
  - Pyrexia [Unknown]
  - Dyspnoea [Unknown]

NARRATIVE: CASE EVENT DATE: 20151023
